FAERS Safety Report 9996438 (Version 1)
Quarter: 2014Q1

REPORT INFORMATION
  Report Type: Spontaneous
  Country: US (occurrence: None)
  Receive Date: 20140310
  Receipt Date: 20140310
  Transmission Date: 20141002
  Serious: Yes (Hospitalization)
  Sender: FDA-Public Use
  Company Number: None

PATIENT
  Age: 67 Year
  Sex: Male
  Weight: 127.46 kg

DRUGS (12)
  1. PRADAXA [Suspect]
     Indication: ATRIAL FIBRILLATION
     Route: 048
     Dates: start: 20140115, end: 20140203
  2. SPIRONOLACTONE [Concomitant]
  3. ZOSYN [Concomitant]
  4. ZYVOX [Concomitant]
  5. ATORVASTATIN [Concomitant]
  6. CLONIDINE [Concomitant]
  7. IMDUR [Concomitant]
  8. DILTIAZEM [Concomitant]
  9. PENTASA CR [Concomitant]
  10. MVI [Concomitant]
  11. ASCORBIC ACID [Concomitant]
  12. FLUCONAZOLE [Concomitant]

REACTIONS (2)
  - Gastrointestinal haemorrhage [None]
  - Haemoglobin decreased [None]
